FAERS Safety Report 6928110-5 (Version None)
Quarter: 2010Q3

REPORT INFORMATION
  Report Type: 
  Country: None (occurrence: None)
  Receive Date: 20100812
  Receipt Date: 20100728
  Transmission Date: 20110219
  Serious: Yes (Life-Threatening)
  Sender: FDA-Public Use
  Company Number: GB-DEXPHARM-20101136

PATIENT
  Age: 28 Year
  Sex: Female

DRUGS (4)
  1. INSTILLAGEL [Suspect]
     Indication: LOCAL ANAESTHESIA
     Dosage: DOSE: 3 ML MILLILITRE(S) VAGINAL
     Route: 067
     Dates: end: 20100706
  2. MIRENA [Suspect]
     Indication: CONTRACEPTION
     Dosage: DOSE: 52 MG MILLIGRAM(S) VAGINAL
     Route: 067
     Dates: start: 20100706
  3. IMPLANTON (ETONOGESTREL) [Concomitant]
  4. LIDOCAINE [Concomitant]

REACTIONS (1)
  - ANAPHYLACTIC REACTION [None]
